FAERS Safety Report 5367351-8 (Version None)
Quarter: 2007Q2

REPORT INFORMATION
  Report Type: 
  Country: None (occurrence: None)
  Receive Date: 20070622
  Receipt Date: 20060725
  Transmission Date: 20071010
  Serious: No
  Sender: FDA-Public Use
  Company Number: US-ASTRAZENECA-2006UW15051

PATIENT
  Age: 49 Year
  Sex: Female
  Weight: 95.3 kg

DRUGS (6)
  1. PULMICORT [Suspect]
     Indication: ASTHMA
     Route: 055
     Dates: start: 20060723
  2. LOVXYL [Concomitant]
  3. ALLEGRA [Concomitant]
  4. ACTIVELLA [Concomitant]
  5. NEURONTIN [Concomitant]
  6. ADVAIR DISKUS 100/50 [Concomitant]
     Dates: end: 20060723

REACTIONS (2)
  - AGITATION [None]
  - FEELING ABNORMAL [None]
